FAERS Safety Report 13012338 (Version 1)
Quarter: 2016Q4

REPORT INFORMATION
  Report Type: Spontaneous
  Country: US (occurrence: US)
  Receive Date: 20161207
  Receipt Date: 20161207
  Transmission Date: 20170207
  Serious: Yes (Life-Threatening, Hospitalization)
  Sender: FDA-Public Use
  Company Number: None

PATIENT
  Age: 63 Year
  Sex: Male
  Weight: 87.8 kg

DRUGS (1)
  1. WARFARIN [Suspect]
     Active Substance: WARFARIN
     Indication: CARDIAC VENTRICULAR THROMBOSIS
     Dosage: MG EVERY DAY PO
     Route: 048
     Dates: start: 20150116, end: 20160817

REACTIONS (7)
  - Dyspnoea [None]
  - Haemorrhage [None]
  - Fatigue [None]
  - Myalgia [None]
  - Haemoglobin decreased [None]
  - International normalised ratio increased [None]
  - Hypotension [None]

NARRATIVE: CASE EVENT DATE: 20160817
